FAERS Safety Report 23761021 (Version 1)
Quarter: 2024Q2

REPORT INFORMATION
  Report Type: Spontaneous
  Country: US (occurrence: US)
  Receive Date: 20240419
  Receipt Date: 20240419
  Transmission Date: 20240715
  Serious: No
  Sender: FDA-Public Use
  Company Number: US-LEO Pharma-369376

PATIENT
  Age: 60 Year
  Sex: Female

DRUGS (1)
  1. ADBRY [Suspect]
     Active Substance: TRALOKINUMAB-LDRM
     Indication: Dermatitis atopic
     Dosage: INJECT 4 SYRINGES UNDER THE SKIN ON DAY 1, THEN START MAINTENANCE DOSING AS DIRECTED ON DAY 15. MAIN
     Route: 058
     Dates: start: 202403

REACTIONS (4)
  - Vision blurred [Unknown]
  - Eyelid pain [Unknown]
  - Rash [Unknown]
  - Eye pain [Unknown]
